FAERS Safety Report 8086567-3 (Version None)
Quarter: 2012Q1

REPORT INFORMATION
  Report Type: 
  Country: None (occurrence: None)
  Receive Date: 20120128
  Receipt Date: 20110512
  Transmission Date: 20120608
  Serious: No
  Sender: FDA-Public Use
  Company Number: US-ABBOTT-11P-163-0725108-00

PATIENT
  Age: 40 Year
  Sex: Female

DRUGS (5)
  1. METFFORMIN HYDROCHLORIDE [Concomitant]
     Indication: DIABETES MELLITUS
  2. HUMIRA [Suspect]
     Indication: PSORIASIS
     Dates: start: 20110503
  3. LISINOPRIL [Concomitant]
     Indication: BLOOD PRESSURE
  4. GLIMEPIRIDE [Concomitant]
     Indication: DIABETES MELLITUS
  5. UNKNOWN CHOLESTEROL PILL [Concomitant]
     Indication: BLOOD CHOLESTEROL INCREASED
     Dosage: PILL

REACTIONS (6)
  - ERYTHEMA [None]
  - FEELING ABNORMAL [None]
  - INCORRECT ROUTE OF DRUG ADMINISTRATION [None]
  - WRONG TECHNIQUE IN DRUG USAGE PROCESS [None]
  - PAIN IN EXTREMITY [None]
  - INCORRECT DOSE ADMINISTERED [None]
